FAERS Safety Report 20417894 (Version 2)
Quarter: 2022Q2

REPORT INFORMATION
  Report Type: Spontaneous
  Country: US (occurrence: US)
  Receive Date: 20220202
  Receipt Date: 20220616
  Transmission Date: 20220721
  Serious: No
  Sender: FDA-Public Use
  Company Number: US-SA-SAC20220127000566

PATIENT
  Age: 69 Year
  Sex: Female

DRUGS (1)
  1. CERDELGA [Suspect]
     Active Substance: ELIGLUSTAT
     Indication: Gaucher^s disease
     Dosage: 84 MG, BID
     Route: 048
     Dates: start: 20191218

REACTIONS (5)
  - Gastrooesophageal reflux disease [Unknown]
  - Weight decreased [Unknown]
  - Dry skin [Unknown]
  - Depression [Unknown]
  - Decreased appetite [Unknown]
